FAERS Safety Report 7605162-0 (Version None)
Quarter: 2011Q3

REPORT INFORMATION
  Report Type: 
  Country: None (occurrence: None)
  Receive Date: 20110713
  Receipt Date: 20110622
  Transmission Date: 20111222
  Serious: Yes (Other)
  Sender: FDA-Public Use
  Company Number: US-BAYER-2011-028972

PATIENT
  Age: 31 Year
  Sex: Female
  Weight: 62 kg

DRUGS (5)
  1. NEXIUM [Concomitant]
  2. YAZ [Suspect]
     Indication: PREMENSTRUAL SYNDROME
  3. YAZ [Suspect]
     Indication: CONTRACEPTION
     Dosage: UNK
     Dates: start: 20090401, end: 20090701
  4. YAZ [Suspect]
     Indication: MENSTRUATION IRREGULAR
  5. PROZAC [Concomitant]
     Indication: DEPRESSION

REACTIONS (11)
  - BILIARY DYSKINESIA [None]
  - DEPRESSION [None]
  - DYSPEPSIA [None]
  - CHOLECYSTITIS CHRONIC [None]
  - ABDOMINAL PAIN UPPER [None]
  - ANXIETY [None]
  - GALLBLADDER DISORDER [None]
  - MENTAL DISORDER [None]
  - DIZZINESS [None]
  - ABDOMINAL DISTENSION [None]
  - GASTROINTESTINAL DISORDER [None]
